FAERS Safety Report 25869939 (Version 4)
Quarter: 2025Q4

REPORT INFORMATION
  Report Type: Report from Study
  Country: US (occurrence: US)
  Receive Date: 20251001
  Receipt Date: 20251226
  Transmission Date: 20260118
  Serious: Yes (Hospitalization, Other)
  Sender: ABBVIE
  Company Number: US-ABBVIE-6481417

PATIENT
  Age: 58 Year
  Sex: Female

DRUGS (1)
  1. VENCLEXTA [Suspect]
     Active Substance: VENETOCLAX
     Indication: Acute myeloid leukaemia
     Dosage: FULL DOSAGE - 100MG - 2 TABLETS BY MOUTH ONCE DAILY ON DAYS 1 TO14 OF A 28 DAY CYCLE
     Route: 048
     Dates: start: 20250923

REACTIONS (8)
  - Hospitalisation [Unknown]
  - Platelet count decreased [Unknown]
  - Vision blurred [Unknown]
  - Stress [Unknown]
  - Emotional disorder [Unknown]
  - Acute myeloid leukaemia recurrent [Unknown]
  - Immune thrombocytopenia [Unknown]
  - Transfusion [Unknown]

NARRATIVE: CASE EVENT DATE: 20250101
